FAERS Safety Report 9191316 (Version 1)
Quarter: 2013Q1

REPORT INFORMATION
  Report Type: Spontaneous
  Country: GB (occurrence: GB)
  Receive Date: 20130326
  Receipt Date: 20130326
  Transmission Date: 20140127
  Serious: Yes (Other)
  Sender: FDA-Public Use
  Company Number: GB-PFIZER INC-2013094199

PATIENT
  Age: 68 Year
  Sex: Male

DRUGS (7)
  1. CHAMPIX [Suspect]
     Dosage: 1 TABLET TWICE DAILY
     Route: 048
     Dates: start: 20130306, end: 20130310
  2. MEBEVERINE [Concomitant]
     Dosage: 135 MG, UNK
  3. METOCLOPRAMIDE [Concomitant]
     Dosage: 10 MG, UNK
  4. OMEPRAZOLE [Concomitant]
     Dosage: 40 MG, UNK
  5. FINASTERIDE [Concomitant]
     Dosage: 5 MG, UNK
  6. ALFUZOSIN [Concomitant]
     Dosage: 10 MG, UNK
  7. PARACETAMOL [Concomitant]
     Dosage: 500 MG, UNK

REACTIONS (6)
  - Mental status changes [Recovered/Resolved]
  - Insomnia [Recovered/Resolved]
  - Dystonia [Recovered/Resolved]
  - Tremor [Recovered/Resolved]
  - Drooling [Recovered/Resolved]
  - Amnesia [Recovered/Resolved]
